FAERS Safety Report 13337967 (Version 15)
Quarter: 2020Q2

REPORT INFORMATION
  Report Type: Spontaneous
  Country: US (occurrence: US)
  Receive Date: 20170315
  Receipt Date: 20200615
  Transmission Date: 20200713
  Serious: Yes (Hospitalization, Other)
  Sender: FDA-Public Use
  Company Number: US-PFIZER INC-2017104454

PATIENT
  Age: 72 Year
  Sex: Female
  Weight: 63 kg

DRUGS (7)
  1. XELJANZ XR [Suspect]
     Active Substance: TOFACITINIB CITRATE
     Indication: RHEUMATOID ARTHRITIS
     Dosage: 11 MG, 1X/DAY (ONLY AM)
     Route: 048
  2. XELJANZ XR [Suspect]
     Active Substance: TOFACITINIB CITRATE
     Dosage: 11 MG, DAILY
     Route: 048
     Dates: start: 2017
  3. PILOCARPINE. [Concomitant]
     Active Substance: PILOCARPINE
     Dosage: UNK
  4. XELJANZ XR [Suspect]
     Active Substance: TOFACITINIB CITRATE
     Dosage: 11 MG, DAILY
     Route: 048
     Dates: start: 20161201, end: 20170224
  5. TRAMADOL. [Concomitant]
     Active Substance: TRAMADOL
     Dosage: UNK
  6. SYNTHROID [Concomitant]
     Active Substance: LEVOTHYROXINE SODIUM
     Dosage: UNK
  7. XELJANZ XR [Suspect]
     Active Substance: TOFACITINIB CITRATE
     Dosage: 11 MG, DAILY
     Route: 048
     Dates: start: 201902

REACTIONS (18)
  - Syncope [Unknown]
  - Loss of consciousness [Recovered/Resolved]
  - Arthropathy [Unknown]
  - Pleurisy [Recovered/Resolved]
  - Fall [Unknown]
  - Herpes zoster [Recovered/Resolved]
  - Concussion [Unknown]
  - Anaemia [Recovered/Resolved]
  - Blood creatinine increased [Recovering/Resolving]
  - Respiratory disorder [Unknown]
  - Condition aggravated [Unknown]
  - Contusion [Unknown]
  - Pneumocystis jirovecii pneumonia [Recovered/Resolved]
  - Memory impairment [Unknown]
  - Bedridden [Recovered/Resolved]
  - Fatigue [Recovered/Resolved]
  - Asthenia [Recovered/Resolved]
  - Blood iron decreased [Recovered/Resolved]

NARRATIVE: CASE EVENT DATE: 20170214
